FAERS Safety Report 16312639 (Version 1)
Quarter: 2019Q2

REPORT INFORMATION
  Report Type: Spontaneous
  Country: US (occurrence: US)
  Receive Date: 20190515
  Receipt Date: 20190515
  Transmission Date: 20190711
  Serious: Yes (Other)
  Sender: FDA-Public Use
  Company Number: US-MALLINCKRODT-T201902053

PATIENT
  Age: 54 Year
  Sex: Female

DRUGS (2)
  1. METHADONE [Suspect]
     Active Substance: METHADONE HYDROCHLORIDE
     Indication: PAIN
     Dosage: UNK
     Route: 048
  2. METHADONE [Suspect]
     Active Substance: METHADONE HYDROCHLORIDE
     Dosage: 10 MG, TWICE A DAY
     Route: 048

REACTIONS (6)
  - Diarrhoea [Unknown]
  - Panic attack [Unknown]
  - Vomiting [Unknown]
  - Drug dependence [Unknown]
  - Drug intolerance [Unknown]
  - Cold sweat [Unknown]
